FAERS Safety Report 15993601 (Version 2)
Quarter: 2019Q1

REPORT INFORMATION
  Report Type: Spontaneous
  Country: JP (occurrence: JP)
  Receive Date: 20190222
  Receipt Date: 20190306
  Transmission Date: 20190418
  Serious: Yes (Death, Other)
  Sender: FDA-Public Use
  Company Number: JP-TAKEDA-2019TJP004000

PATIENT
  Age: 67 Year
  Sex: Male

DRUGS (1)
  1. NINLARO [Suspect]
     Active Substance: IXAZOMIB CITRATE
     Indication: PLASMA CELL MYELOMA
     Dosage: UNK
     Route: 048
     Dates: start: 20190123

REACTIONS (3)
  - Plasma cell myeloma [Fatal]
  - Arrhythmia [Fatal]
  - Sepsis [Fatal]

NARRATIVE: CASE EVENT DATE: 201902
